FAERS Safety Report 6563455-2 (Version None)
Quarter: 2010Q1

REPORT INFORMATION
  Report Type: 
  Country: None (occurrence: None)
  Receive Date: 20100130
  Receipt Date: 20091216
  Transmission Date: 20100710
  Serious: No
  Sender: FDA-Public Use
  Company Number: US-ABBOTT-09P-163-0614903-00

PATIENT
  Sex: Female

DRUGS (5)
  1. HUMIRA [Suspect]
     Indication: RHEUMATOID ARTHRITIS
     Dates: start: 20090923
  2. METHOTREXATE [Concomitant]
     Indication: DRUG USE FOR UNKNOWN INDICATION
     Dates: start: 20060620
  3. WYGESIC [Concomitant]
     Indication: DRUG USE FOR UNKNOWN INDICATION
     Dosage: 2 IN 1 D, AS NEEDED
     Dates: start: 20060620
  4. PLAQUENIL [Concomitant]
     Indication: DRUG USE FOR UNKNOWN INDICATION
     Dates: start: 20060620
  5. TYLENOL-500 [Concomitant]
     Indication: BREAKTHROUGH PAIN
     Dates: start: 20060620

REACTIONS (6)
  - ARTHRALGIA [None]
  - ERYTHEMA [None]
  - HYPOAESTHESIA [None]
  - JOINT SWELLING [None]
  - JOINT WARMTH [None]
  - PARAESTHESIA [None]
